FAERS Safety Report 18242809 (Version 1)
Quarter: 2020Q3

REPORT INFORMATION
  Report Type: Other
  Country: GB (occurrence: GB)
  Receive Date: 20200908
  Receipt Date: 20200908
  Transmission Date: 20201103
  Serious: Yes (Life-Threatening, Other)
  Sender: FDA-Public Use
  Company Number: GB-MACLEODS PHARMACEUTICALS US LTD-MAC2020027903

PATIENT

DRUGS (9)
  1. RALTEGRAVIR. [Suspect]
     Active Substance: RALTEGRAVIR
     Indication: HIV INFECTION
     Dosage: 1200 MILLIGRAM, ADMINISTERED WITH TRUVADA
     Route: 048
     Dates: start: 201807, end: 20190430
  2. NEVIRAPINE 400 MG [Suspect]
     Active Substance: NEVIRAPINE
     Indication: HIV INFECTION
     Dosage: 400 MILLIGRAM, ADMINISTERED WITH TRUVADA
     Route: 048
     Dates: start: 20191101, end: 20191212
  3. LAMIVUDINE. [Suspect]
     Active Substance: LAMIVUDINE
     Indication: HIV INFECTION
     Dosage: 50 MILLIGRAM
     Route: 048
     Dates: start: 20190926, end: 20191031
  4. EVIPLERA [Suspect]
     Active Substance: EMTRICITABINE\RILPIVIRINE\TENOFOVIR DISOPROXIL FUMARATE
     Indication: HIV INFECTION
     Dosage: 25 MILLIGRAM
     Route: 048
     Dates: start: 20190501, end: 20190612
  5. RILPIVIRINE [Suspect]
     Active Substance: RILPIVIRINE
     Indication: HIV INFECTION
     Dosage: 75 MILLIGRAM, 50MG+25MG
     Route: 048
     Dates: start: 20200308, end: 20200320
  6. DOLUTEGRAVIR [Suspect]
     Active Substance: DOLUTEGRAVIR
     Indication: HIV INFECTION
     Dosage: 50 MG, ADMINISTERED WITH LAMIVUDINE
     Route: 048
     Dates: start: 20190926, end: 20191031
  7. DOLUTEGRAVIR [Suspect]
     Active Substance: DOLUTEGRAVIR
     Dosage: UNK, 50MG+25MG
     Route: 048
     Dates: start: 20200308, end: 20200320
  8. TRUVADA [Suspect]
     Active Substance: EMTRICITABINE\TENOFOVIR DISOPROXIL FUMARATE
     Indication: HIV INFECTION
     Dosage: 1200 MILLIGRAM
     Route: 048
     Dates: start: 201807, end: 20190430
  9. TRUVADA [Suspect]
     Active Substance: EMTRICITABINE\TENOFOVIR DISOPROXIL FUMARATE
     Dosage: 400 MILLIGRAM
     Route: 048
     Dates: start: 20191101, end: 20191212

REACTIONS (5)
  - Erectile dysfunction [Not Recovered/Not Resolved]
  - Neuropathy peripheral [Unknown]
  - Muscular weakness [Unknown]
  - Dizziness [Unknown]
  - Gynaecomastia [Unknown]

NARRATIVE: CASE EVENT DATE: 201811
